FAERS Safety Report 6400452-1 (Version None)
Quarter: 2009Q4

REPORT INFORMATION
  Report Type: 
  Country: None (occurrence: None)
  Receive Date: 20091014
  Receipt Date: 20091001
  Transmission Date: 20100525
  Serious: Yes (Hospitalization)
  Sender: FDA-Public Use
  Company Number: CA-ELI_LILLY_AND_COMPANY-CA200910000721

PATIENT
  Age: 74 Year
  Sex: Female

DRUGS (6)
  1. FORTEO [Suspect]
     Indication: OSTEOPOROSIS
     Dosage: 20 UG, DAILY (1/D)
     Dates: start: 20080331
  2. IMOVANE [Concomitant]
     Dosage: UNK, AS NEEDED
  3. NITROGLYCERIN [Concomitant]
     Dosage: UNK, AS NEEDED
  4. TYLENOL                                 /SCH/ [Concomitant]
     Dosage: UNK, AS NEEDED
  5. CALCIUM                                 /N/A/ [Concomitant]
  6. VITAMIN D [Concomitant]

REACTIONS (4)
  - ARTHRALGIA [None]
  - FALL [None]
  - HEART VALVE INCOMPETENCE [None]
  - UPPER LIMB FRACTURE [None]
